FAERS Safety Report 8586863-7 (Version None)
Quarter: 2012Q3

REPORT INFORMATION
  Report Type: 
  Country: None (occurrence: None)
  Receive Date: 20120810
  Receipt Date: 20120217
  Transmission Date: 20120928
  Serious: Yes (Other)
  Sender: FDA-Public Use
  Company Number: CHPA2012US009804

PATIENT
  Age: 68 Year
  Sex: Female

DRUGS (1)
  1. EXCEDRIN (MIGRAINE) [Suspect]
     Indication: GOUT
     Dosage: 2 DF, QD
     Route: 048
     Dates: start: 19620101, end: 20120101

REACTIONS (10)
  - MUSCULOSKELETAL STIFFNESS [None]
  - GOUT [None]
  - PANIC REACTION [None]
  - THERAPEUTIC RESPONSE DECREASED [None]
  - INSOMNIA [None]
  - PAIN [None]
  - NAUSEA [None]
  - OFF LABEL USE [None]
  - EMOTIONAL DISTRESS [None]
  - ARTHRITIS [None]
